FAERS Safety Report 7716173-9 (Version None)
Quarter: 2011Q3

REPORT INFORMATION
  Report Type: 
  Country: None (occurrence: None)
  Receive Date: 20110829
  Receipt Date: 20110817
  Transmission Date: 20111222
  Serious: Yes (Other)
  Sender: FDA-Public Use
  Company Number: US-ELI_LILLY_AND_COMPANY-US201108006580

PATIENT
  Sex: Male

DRUGS (6)
  1. ANALGESICS [Concomitant]
  2. MUSCLE RELAXANTS [Concomitant]
  3. NAPROSYN [Concomitant]
  4. NIACIN [Concomitant]
     Indication: BLOOD PRESSURE ABNORMAL
  5. CYMBALTA [Suspect]
     Indication: DEPRESSION
     Dosage: 60 MG, QD
     Dates: start: 20101001, end: 20110805
  6. NAPROXEN (ALEVE) [Concomitant]

REACTIONS (8)
  - SUICIDAL IDEATION [None]
  - DRUG DOSE OMISSION [None]
  - JOINT INJURY [None]
  - CRYING [None]
  - BLOOD GLUCOSE INCREASED [None]
  - ROTATOR CUFF SYNDROME [None]
  - ABDOMINAL HERNIA [None]
  - CONSTIPATION [None]
